FAERS Safety Report 22109688 (Version 1)
Quarter: 2023Q1

REPORT INFORMATION
  Report Type: Report from Study
  Country: US (occurrence: None)
  Receive Date: 20230317
  Receipt Date: 20230317
  Transmission Date: 20230418
  Serious: Yes (Death)
  Sender: FDA-Public Use
  Company Number: US-ROCHE-3311572

PATIENT

DRUGS (1)
  1. ATEZOLIZUMAB [Suspect]
     Active Substance: ATEZOLIZUMAB
     Indication: Inflammatory carcinoma of the breast
     Route: 041
     Dates: start: 20200701, end: 20200709

REACTIONS (1)
  - Inflammatory carcinoma of the breast [Fatal]

NARRATIVE: CASE EVENT DATE: 20200822
